FAERS Safety Report 15632416 (Version 1)
Quarter: 2018Q4

REPORT INFORMATION
  Report Type: Spontaneous
  Country: DE (occurrence: DE)
  Receive Date: 20181119
  Receipt Date: 20181119
  Transmission Date: 20190205
  Serious: Yes (Hospitalization, Other)
  Sender: FDA-Public Use
  Company Number: DE-UCBSA-2018050357

PATIENT
  Sex: Female

DRUGS (3)
  1. ETANERCEPT [Concomitant]
     Active Substance: ETANERCEPT
     Indication: RHEUMATOID ARTHRITIS
     Dosage: 50 MG, WEEKLY (QW)
     Route: 058
     Dates: start: 201703
  2. CIMZIA [Suspect]
     Active Substance: CERTOLIZUMAB PEGOL
     Indication: RHEUMATOID ARTHRITIS
     Dosage: 200 MG, EV 2 WEEKS(QOW)
     Route: 058
     Dates: start: 201801, end: 20180406
  3. CIMZIA [Suspect]
     Active Substance: CERTOLIZUMAB PEGOL
     Dosage: 200 MG, EV 2 WEEKS(QOW)
     Route: 058
     Dates: start: 20180611

REACTIONS (12)
  - Muscular weakness [Unknown]
  - Syncope [Recovered/Resolved]
  - Autonomic nervous system imbalance [Unknown]
  - Gait disturbance [Unknown]
  - Autoimmune thyroiditis [Unknown]
  - Lymphadenopathy [Unknown]
  - Off label use [Unknown]
  - Hyporeflexia [Unknown]
  - Hypoaesthesia [Unknown]
  - Protein total increased [Unknown]
  - Central nervous system lesion [Unknown]
  - Rheumatoid arthritis [Unknown]

NARRATIVE: CASE EVENT DATE: 2018
